FAERS Safety Report 4414402-0 (Version None)
Quarter: 2004Q3

REPORT INFORMATION
  Report Type: 
  Country: None (occurrence: None)
  Receive Date: 20040729
  Receipt Date: 20040630
  Transmission Date: 20050211
  Serious: Yes (Other)
  Sender: FDA-Public Use
  Company Number: M2004-0897

PATIENT
  Age: 27 Year
  Sex: Female

DRUGS (2)
  1. RIMACTANE, UN, UNKNOWN MANUFACTURER [Suspect]
     Indication: PULMONARY TUBERCULOSIS
  2. CYCLOSPORINE [Suspect]
     Dates: start: 19930101

REACTIONS (3)
  - DRUG INTERACTION [None]
  - DRUG LEVEL DECREASED [None]
  - PULMONARY TUBERCULOSIS [None]
